FAERS Safety Report 4320233-2 (Version None)
Quarter: 2004Q1

REPORT INFORMATION
  Report Type: 
  Country: None (occurrence: None)
  Receive Date: 20040317
  Receipt Date: 20040303
  Transmission Date: 20041129
  Serious: Yes (Hospitalization)
  Sender: FDA-Public Use
  Company Number: 2004015270

PATIENT
  Age: 73 Year
  Sex: Female
  Weight: 80 kg

DRUGS (7)
  1. SORTIS (ATORVASTATIN) [Suspect]
     Indication: HYPERLIPIDAEMIA
     Dosage: 20 MG DAILY ORAL
     Route: 048
     Dates: start: 20000101
  2. PHENPROCOUMON (PHENPROCOUMON) [Suspect]
     Indication: HEART VALVE REPLACEMENT
     Dosage: 1.5 MG DAILY ORAL
     Route: 048
     Dates: start: 20000101
  3. ENOXAPARIN SODIUM [Suspect]
     Indication: AORTIC VALVE REPLACEMENT
     Dosage: 18000 I.U. DAILY, SUBCUTANEOUS
     Route: 058
     Dates: start: 20031114, end: 20031116
  4. GLIMEPIRIDE [Concomitant]
  5. METOPROLOL SUCCINATE [Concomitant]
  6. OX BILE EXTRACT [Concomitant]
  7. CLINDAMYCIN HCL [Concomitant]

REACTIONS (8)
  - DRUG INTERACTION [None]
  - HAEMATEMESIS [None]
  - HAEMATOMA [None]
  - HAEMORRHAGE [None]
  - HAEMORRHAGE SUBCUTANEOUS [None]
  - MELAENA [None]
  - POST PROCEDURAL COMPLICATION [None]
  - POST PROCEDURAL HAEMORRHAGE [None]
